FAERS Safety Report 10235087 (Version 1)
Quarter: 2014Q2

REPORT INFORMATION
  Report Type: Spontaneous
  Country: US (occurrence: None)
  Receive Date: 20140611
  Receipt Date: 20140611
  Transmission Date: 20141212
  Serious: Yes (Hospitalization)
  Sender: FDA-Public Use
  Company Number: 2375391

PATIENT
  Age: 50 Year
  Sex: Male

DRUGS (4)
  1. CYTARABINE [Suspect]
     Indication: ACUTE BIPHENOTYPIC LEUKAEMIA
  2. IDARUBICIN [Suspect]
     Indication: ACUTE BIPHENOTYPIC LEUKAEMIA
  3. CLOFARABINE [Suspect]
     Indication: ACUTE BIPHENOTYPIC LEUKAEMIA
  4. SOLU-MEDROL [Suspect]
     Indication: ACUTE BIPHENOTYPIC LEUKAEMIA
     Route: 042

REACTIONS (6)
  - Pancytopenia [None]
  - Enterococcal infection [None]
  - Diffuse large B-cell lymphoma stage IV [None]
  - Epstein-Barr virus test positive [None]
  - Pneumonia fungal [None]
  - Sepsis [None]
